FAERS Safety Report 7240957-7 (Version None)
Quarter: 2011Q1

REPORT INFORMATION
  Report Type: 
  Country: None (occurrence: None)
  Receive Date: 20110124
  Receipt Date: 20110119
  Transmission Date: 20110831
  Serious: Yes (Death, Other)
  Sender: FDA-Public Use
  Company Number: PHHY2010US79915

PATIENT
  Sex: Male

DRUGS (8)
  1. AMBIEN [Concomitant]
     Dosage: 10 MG, UNK
     Route: 048
  2. TEKTURNA [Suspect]
     Indication: HYPERTENSION
     Dosage: 150 MG, QD
     Route: 048
  3. PAXIL [Concomitant]
     Dosage: 20 MG, QD
  4. COZAAR [Concomitant]
     Dosage: 100 MG, UNK
  5. MAXCIL [Concomitant]
     Dosage: UNK
     Dates: start: 20100820
  6. METOPROLOL [Concomitant]
     Dosage: UNK
     Dates: start: 20100504
  7. RISPERDAL [Suspect]
  8. LOVASTATIN [Concomitant]
     Dosage: 40 MG,UNK
     Route: 048
     Dates: start: 20070704

REACTIONS (3)
  - MENTAL DISORDER [None]
  - HYPERTROPHIC CARDIOMYOPATHY [None]
  - DEATH [None]
